FAERS Safety Report 8381827 (Version 2)
Quarter: 2013Q1

REPORT INFORMATION
  Report Type: Spontaneous
  Country: US (occurrence: US)
  Receive Date: 20120201
  Receipt Date: 20130218
  Transmission Date: 20140127
  Serious: No
  Sender: FDA-Public Use
  Company Number: US-PFIZER INC-2012023588

PATIENT
  Age: 28 Year
  Sex: Female
  Weight: 49.8 kg

DRUGS (3)
  1. LYRICA [Suspect]
     Indication: FIBROMYALGIA
     Dosage: 200 MG, 3X/DAY
     Route: 048
     Dates: start: 2009
  2. LYRICA [Suspect]
     Indication: PAIN
  3. METHOCARBAMOL [Concomitant]
     Indication: MUSCLE SPASMS
     Dosage: UNK

REACTIONS (3)
  - Wrong technique in drug usage process [Unknown]
  - Tremor [Unknown]
  - Withdrawal syndrome [Recovered/Resolved]
